FAERS Safety Report 8455789-1 (Version None)
Quarter: 2012Q2

REPORT INFORMATION
  Report Type: 
  Country: None (occurrence: None)
  Receive Date: 20120621
  Receipt Date: 20120614
  Transmission Date: 20120825
  Serious: Yes (Other)
  Sender: FDA-Public Use
  Company Number: US-PFIZER INC-2012144725

PATIENT
  Age: 69 Year
  Sex: Male
  Weight: 56.689 kg

DRUGS (5)
  1. ACETYLSALICYLIC ACID [Concomitant]
     Dosage: 81 MG, DAILY
     Route: 048
  2. VALSARTAN [Concomitant]
     Dosage: 80 MG, DAILY
     Route: 048
  3. SILDENAFIL [Concomitant]
     Dosage: 50 MG, DAILY
     Route: 048
  4. VARENICLINE TARTRATE [Suspect]
     Dosage: 0.5 MG, 1X/DAY
     Route: 048
  5. METFORMIN [Concomitant]
     Dosage: 850 MG, 2X/DAY
     Route: 048

REACTIONS (1)
  - DRUG-INDUCED LIVER INJURY [None]
